FAERS Safety Report 9178745 (Version 1)
Quarter: 2013Q1

REPORT INFORMATION
  Report Type: Spontaneous
  Country: FR (occurrence: FR)
  Receive Date: 20130321
  Receipt Date: 20130321
  Transmission Date: 20140127
  Serious: Yes (Life-Threatening, Hospitalization)
  Sender: FDA-Public Use
  Company Number: FR-ROCHE-1204375

PATIENT
  Age: 31 Year
  Sex: Female

DRUGS (4)
  1. TAMIFLU [Suspect]
     Indication: PRODUCT USED FOR UNKNOWN INDICATION
     Route: 048
     Dates: start: 20130202, end: 20130205
  2. TAVANIC [Suspect]
     Indication: PRODUCT USED FOR UNKNOWN INDICATION
     Dosage: 5GM/ML
     Route: 065
     Dates: start: 20130202, end: 20130205
  3. PERFALGAN [Concomitant]
     Route: 065
     Dates: start: 20130201, end: 20130203
  4. ATARAX [Concomitant]
     Route: 065
     Dates: start: 20130203

REACTIONS (1)
  - Bicytopenia [Recovered/Resolved]
